FAERS Safety Report 10208111 (Version 3)
Quarter: 2014Q4

REPORT INFORMATION
  Report Type: Report from Study
  Country: CA (occurrence: CA)
  Receive Date: 20140530
  Receipt Date: 20141121
  Transmission Date: 20150528
  Serious: Yes (Hospitalization, Other)
  Sender: FDA-Public Use
  Company Number: CA-JNJFOC-20140300923

PATIENT
  Age: 38 Year
  Sex: Female
  Weight: 68 kg

DRUGS (3)
  1. REMICADE [Suspect]
     Active Substance: INFLIXIMAB
     Indication: COLITIS ULCERATIVE
     Dosage: 3 RD INFUSION, 4 REPEATS
     Route: 042
  2. REMICADE [Suspect]
     Active Substance: INFLIXIMAB
     Indication: COLITIS ULCERATIVE
     Route: 042
     Dates: start: 20140228
  3. REMICADE [Suspect]
     Active Substance: INFLIXIMAB
     Indication: COLITIS ULCERATIVE
     Dosage: 4 REPEATS AND SECOND REPEAT
     Route: 042
     Dates: start: 20121112

REACTIONS (3)
  - Dehydration [Not Recovered/Not Resolved]
  - Pancreatitis [Not Recovered/Not Resolved]
  - Cholangitis sclerosing [Recovering/Resolving]

NARRATIVE: CASE EVENT DATE: 201402
